FAERS Safety Report 7906177-5 (Version None)
Quarter: 2011Q4

REPORT INFORMATION
  Report Type: 
  Country: None (occurrence: None)
  Receive Date: 20111110
  Receipt Date: 20111102
  Transmission Date: 20120403
  Serious: Yes (Other)
  Sender: FDA-Public Use
  Company Number: JP-SANOFI-AVENTIS-2011SA019953

PATIENT

DRUGS (9)
  1. PACLITAXEL [Suspect]
     Route: 065
  2. DOCETAXEL [Suspect]
     Route: 065
  3. CISPLATIN [Suspect]
     Route: 065
  4. PEMETREXED [Suspect]
     Route: 065
  5. AMIODARONE HCL [Suspect]
     Route: 065
  6. METHOTREXATE [Suspect]
     Route: 065
  7. MESALAMINE [Suspect]
     Route: 065
  8. LEFLUNOMIDE [Suspect]
     Route: 065
  9. VINORELBINE TARTRATE [Suspect]
     Route: 065

REACTIONS (2)
  - INTERSTITIAL LUNG DISEASE [None]
  - LUNG DISORDER [None]
